FAERS Safety Report 5201696-7 (Version None)
Quarter: 2006Q4

REPORT INFORMATION
  Report Type: 
  Country: None (occurrence: None)
  Receive Date: 20061012
  Receipt Date: 20060309
  Transmission Date: 20070319
  Serious: Yes (Other)
  Sender: FDA-Public Use
  Company Number: 13681

PATIENT
  Age: 20 Year
  Sex: Male

DRUGS (7)
  1. METHOTREXATE [Suspect]
     Indication: T-CELL TYPE ACUTE LEUKAEMIA
  2. PREDNISONE [Concomitant]
  3. VINCRISTINE [Concomitant]
  4. DOXORUBICIN HCL [Concomitant]
  5. CYTARABINE [Concomitant]
  6. ELSPAR [Concomitant]
  7. CYCLOPHOSPHAMIDE [Concomitant]

REACTIONS (1)
  - NEUROTOXICITY [None]
